FAERS Safety Report 6464067-1 (Version None)
Quarter: 2010Q1

REPORT INFORMATION
  Report Type: 
  Country: None (occurrence: None)
  Receive Date: 20091130
  Receipt Date: 20091130
  Transmission Date: 20100710
  Serious: Yes (Death)
  Sender: FDA-Public Use
  Company Number: None

PATIENT
  Age: 72 Year
  Sex: Female
  Weight: 61.2 kg

DRUGS (4)
  1. PROPOFOL [Suspect]
     Indication: INDUCTION OF ANAESTHESIA
     Dosage: 60MG X 1 IN OR IV BOLUS
     Route: 040
     Dates: start: 20091119, end: 20091119
  2. DIPRIVAN [Suspect]
     Indication: SEDATIVE THERAPY
     Dosage: 1-3 MG/KG/HR IV DRIP
     Route: 041
     Dates: start: 20091119, end: 20091119
  3. LIDOCAINE [Suspect]
  4. ETOMIDATE [Suspect]

REACTIONS (1)
  - CARDIAC ARREST [None]
